FAERS Safety Report 19159148 (Version 1)
Quarter: 2021Q2

REPORT INFORMATION
  Report Type: Report from Study
  Country: CA (occurrence: CA)
  Receive Date: 20210420
  Receipt Date: 20210420
  Transmission Date: 20210717
  Serious: Yes (Other)
  Sender: FDA-Public Use
  Company Number: CA-UCBSA-2021018341

PATIENT
  Age: 58 Year
  Sex: Female

DRUGS (3)
  1. BRIVARACETAM EP [Suspect]
     Active Substance: BRIVARACETAM
     Indication: GENERALISED TONIC-CLONIC SEIZURE
  2. BRIVARACETAM EP [Suspect]
     Active Substance: BRIVARACETAM
     Indication: OFF LABEL USE
  3. BRIVARACETAM EP [Suspect]
     Active Substance: BRIVARACETAM
     Indication: EPILEPSY
     Dosage: 50 MILLIGRAM, 2X/DAY (BID)
     Route: 048

REACTIONS (3)
  - Speech disorder [Unknown]
  - Seizure [Recovered/Resolved]
  - Off label use [Unknown]

NARRATIVE: CASE EVENT DATE: 20210407
